FAERS Safety Report 7601614-8 (Version None)
Quarter: 2011Q3

REPORT INFORMATION
  Report Type: 
  Country: None (occurrence: None)
  Receive Date: 20110711
  Receipt Date: 20110630
  Transmission Date: 20111222
  Serious: Yes (Other)
  Sender: FDA-Public Use
  Company Number: PHHY2011US58172

PATIENT
  Sex: Female

DRUGS (12)
  1. TASIGNA [Suspect]
     Dosage: 300 MG, BID
     Route: 048
  2. TASIGNA [Suspect]
     Dosage: 200 MG, UNK
     Route: 048
  3. FOLIC ACID [Concomitant]
     Dosage: UNK
  4. METFORMIN HCL [Concomitant]
     Dosage: 1000 MG, BID
  5. FERROUS SULFATE TAB [Concomitant]
  6. HUMALOG [Concomitant]
     Dosage: 5 U, UNK
  7. MAGNESIUM [Concomitant]
  8. LANTUS [Concomitant]
     Dosage: 45 U, DAILY
  9. RAMIPRIL [Concomitant]
  10. ASPIRIN [Concomitant]
     Dosage: 81 MG, UNK
  11. SIMVASTATIN [Concomitant]
     Dosage: UNK
  12. GLIPIZIDE [Concomitant]
     Dosage: 5 MG, QD

REACTIONS (1)
  - ELECTROCARDIOGRAM QT PROLONGED [None]
